FAERS Safety Report 9693606 (Version 2)
Quarter: 2013Q4

REPORT INFORMATION
  Report Type: Spontaneous
  Country: US (occurrence: US)
  Receive Date: 20131118
  Receipt Date: 20131209
  Transmission Date: 20140711
  Serious: Yes (Death, Hospitalization)
  Sender: FDA-Public Use
  Company Number: US-BAXTER-2013BAX044947

PATIENT
  Sex: Female

DRUGS (2)
  1. DIANEAL LOW CALCIUM [Suspect]
     Indication: PERITONEAL DIALYSIS
     Route: 033
     Dates: start: 201301, end: 20131015
  2. DIANEAL LOW CALCIUM [Suspect]
     Indication: PERITONEAL DIALYSIS
     Route: 033
     Dates: start: 201301, end: 20131015

REACTIONS (8)
  - Diabetic complication [Fatal]
  - Sepsis [Fatal]
  - Septic shock [Fatal]
  - Multi-organ failure [Fatal]
  - Cardiac arrest [Fatal]
  - Infected skin ulcer [Unknown]
  - Diabetic ulcer [Unknown]
  - Fluid overload [Unknown]
